FAERS Safety Report 15549661 (Version 1)
Quarter: 2018Q4

REPORT INFORMATION
  Report Type: Spontaneous
  Country: US (occurrence: US)
  Receive Date: 20181025
  Receipt Date: 20181025
  Transmission Date: 20190205
  Serious: No
  Sender: FDA-Public Use
  Company Number: None

PATIENT
  Age: 68 Year
  Sex: Male
  Weight: 94.5 kg

DRUGS (1)
  1. PPD SKIN TEST [Suspect]
     Active Substance: TUBERCULIN PURIFIED PROTEIN DERIVATIVE (MANTOUX)
     Indication: TUBERCULIN TEST
     Dosage: ?          OTHER FREQUENCY:ONE TIME ONLY;?
     Route: 023
     Dates: start: 20181005

REACTIONS (5)
  - Headache [None]
  - Diarrhoea [None]
  - Fear [None]
  - Wrong technique in product usage process [None]
  - Decreased appetite [None]

NARRATIVE: CASE EVENT DATE: 20181005
